FAERS Safety Report 10156049 (Version 1)
Quarter: 2014Q2

REPORT INFORMATION
  Report Type: Spontaneous
  Country: US (occurrence: US)
  Receive Date: 20140506
  Receipt Date: 20140506
  Transmission Date: 20141212
  Serious: No
  Sender: FDA-Public Use
  Company Number: US-009507513-2012SP008485

PATIENT
  Age: 80 Year
  Sex: Female
  Weight: 72.58 kg

DRUGS (3)
  1. CLARITIN [Suspect]
     Indication: HYPERSENSITIVITY
     Dosage: 10 MG, QD
     Route: 048
  2. CLARITIN [Suspect]
     Indication: NASAL CONGESTION
     Dosage: 10 MG, QPM
     Route: 048
     Dates: start: 20120105
  3. CLARITIN [Suspect]
     Dosage: 10 MG, QAM
     Route: 048
     Dates: start: 20120106

REACTIONS (1)
  - Overdose [Recovering/Resolving]
